FAERS Safety Report 5845619-6 (Version None)
Quarter: 2008Q3

REPORT INFORMATION
  Report Type: 
  Country: None (occurrence: None)
  Receive Date: 20080814
  Receipt Date: 20080806
  Transmission Date: 20090109
  Serious: Yes (Life-Threatening)
  Sender: FDA-Public Use
  Company Number: JP-SANOFI-SYNTHELABO-A01200809582

PATIENT
  Age: 62 Year
  Sex: Male

DRUGS (5)
  1. ELPLAT [Suspect]
     Indication: LARGE INTESTINE CARCINOMA
     Route: 041
     Dates: start: 20080618, end: 20080618
  2. AVASTIN [Suspect]
     Dosage: UNK
     Route: 041
     Dates: start: 20080618, end: 20080618
  3. ISOVORIN [Concomitant]
     Route: 041
     Dates: start: 20080618, end: 20080618
  4. FLUOROURACIL [Concomitant]
     Route: 040
     Dates: start: 20080618, end: 20080618
  5. FLUOROURACIL [Concomitant]
     Route: 041
     Dates: start: 20080618, end: 20080619

REACTIONS (1)
  - SMALL INTESTINAL PERFORATION [None]
